FAERS Safety Report 8807858 (Version 6)
Quarter: 2013Q4

REPORT INFORMATION
  Report Type: Spontaneous
  Country: JP (occurrence: JP)
  Receive Date: 20120925
  Receipt Date: 20131223
  Transmission Date: 20140711
  Serious: Yes (Life-Threatening, Disabling)
  Sender: FDA-Public Use
  Company Number: JP-GLAXOSMITHKLINE-B0832099A

PATIENT
  Age: 33 Year
  Sex: Female

DRUGS (11)
  1. FLOLAN [Suspect]
     Indication: PULMONARY ARTERIAL HYPERTENSION
     Route: 042
     Dates: start: 20120112, end: 20120130
  2. PREDNISOLONE [Concomitant]
     Route: 048
  3. PREDNISOLONE [Concomitant]
     Route: 048
     Dates: start: 201102
  4. PREDNISOLONE [Concomitant]
     Route: 048
  5. PREDNISOLONE [Concomitant]
     Route: 048
  6. BERASUS LA [Concomitant]
     Indication: PULMONARY ARTERIAL HYPERTENSION
     Dosage: 60MCG THREE TIMES PER DAY
     Route: 048
     Dates: start: 20111130
  7. BERASUS LA [Concomitant]
     Indication: PULMONARY ARTERIAL HYPERTENSION
     Dosage: 60MCG THREE TIMES PER DAY
     Route: 048
  8. REVATIO [Concomitant]
     Indication: PULMONARY ARTERIAL HYPERTENSION
     Route: 048
     Dates: start: 20120119
  9. REVATIO [Concomitant]
     Indication: PULMONARY ARTERIAL HYPERTENSION
     Dosage: 20MG THREE TIMES PER DAY
     Route: 048
  10. VOLIBRIS [Concomitant]
     Indication: PULMONARY ARTERIAL HYPERTENSION
     Route: 048
     Dates: start: 20120121
  11. VOLIBRIS [Concomitant]
     Indication: PULMONARY ARTERIAL HYPERTENSION
     Dosage: 2.5MG TWICE PER DAY
     Route: 048

REACTIONS (14)
  - Uterine haemorrhage [Recovered/Resolved]
  - Uterine haemorrhage [Unknown]
  - Shock haemorrhagic [Unknown]
  - Disseminated intravascular coagulation [Unknown]
  - Post procedural haemorrhage [Unknown]
  - Live birth [Unknown]
  - Exposure during pregnancy [Unknown]
  - Gestational hypertension [Unknown]
  - Haematoma [Unknown]
  - Condition aggravated [Unknown]
  - Cardiovascular disorder [Unknown]
  - Respiratory disorder [Unknown]
  - Platelet count decreased [Recovered/Resolved]
  - Vaginal discharge [Unknown]
